FAERS Safety Report 14008885 (Version 1)
Quarter: 2017Q3

REPORT INFORMATION
  Report Type: Spontaneous
  Country: FR (occurrence: FR)
  Receive Date: 20170925
  Receipt Date: 20170925
  Transmission Date: 20171128
  Serious: Yes (Hospitalization)
  Sender: FDA-Public Use
  Company Number: FR-TEVA-808009ROM

PATIENT
  Age: 39 Year
  Sex: Male
  Weight: 82 kg

DRUGS (3)
  1. OXALIPLATINE TEVA [Suspect]
     Active Substance: OXALIPLATIN
     Dates: start: 20170912, end: 20170912
  2. FOLINATE [Concomitant]
     Indication: MALIGNANT PERITONEAL NEOPLASM
     Dosage: TENTH CYCLE OF FOLFOX CHEMOTHERAPY PROTOCOL
     Route: 041
  3. OXALIPLATINE TEVA [Suspect]
     Active Substance: OXALIPLATIN
     Indication: MALIGNANT PERITONEAL NEOPLASM
     Dosage: TENTH CYCLE OF FOLFOX CHEMOTHERAPY PROTOCOL
     Route: 041
     Dates: start: 20170809, end: 20170809

REACTIONS (9)
  - Hypotension [Unknown]
  - Skin discolouration [Unknown]
  - Vomiting [Unknown]
  - Pallor [Unknown]
  - Chills [Unknown]
  - Pyrexia [Unknown]
  - General physical health deterioration [Unknown]
  - Dyspnoea [Unknown]
  - Bacterial sepsis [Unknown]

NARRATIVE: CASE EVENT DATE: 20170809
